FAERS Safety Report 5919227-2 (Version None)
Quarter: 2008Q4

REPORT INFORMATION
  Report Type: 
  Country: None (occurrence: None)
  Receive Date: 20081015
  Receipt Date: 20081001
  Transmission Date: 20090506
  Serious: Yes (Other)
  Sender: FDA-Public Use
  Company Number: JP-GENENTECH-269488

PATIENT
  Sex: Male

DRUGS (4)
  1. AVASTIN [Suspect]
     Indication: COLON CANCER METASTATIC
     Dosage: 5 MG/KG, Q2W
     Route: 041
     Dates: start: 20080107
  2. OXALIPLATIN [Suspect]
     Indication: COLON CANCER METASTATIC
     Dosage: 110 MG, QD
     Route: 041
     Dates: start: 20080107, end: 20080609
  3. FLUOROURACIL [Suspect]
     Indication: COLON CANCER METASTATIC
     Dosage: 500 MG, QD
     Dates: start: 20080107, end: 20080610
  4. ISOVORIN [Concomitant]
     Indication: DRUG USE FOR UNKNOWN INDICATION
     Dosage: UNK
     Dates: start: 20080107, end: 20080610

REACTIONS (6)
  - DIARRHOEA [None]
  - DOCUMENTED HYPERSENSITIVITY TO ADMINISTERED DRUG [None]
  - PALMAR-PLANTAR ERYTHRODYSAESTHESIA SYNDROME [None]
  - PLATELET COUNT DECREASED [None]
  - STOMATITIS [None]
  - WHITE BLOOD CELL COUNT DECREASED [None]
